FAERS Safety Report 17001536 (Version 1)
Quarter: 2019Q4

REPORT INFORMATION
  Report Type: Spontaneous
  Country: US (occurrence: US)
  Receive Date: 20191106
  Receipt Date: 20191106
  Transmission Date: 20200122
  Serious: Yes (Hospitalization)
  Sender: FDA-Public Use
  Company Number: US-PFIZER INC-2019471263

PATIENT
  Age: 36 Year
  Sex: Female

DRUGS (1)
  1. PHENYTOIN. [Suspect]
     Active Substance: PHENYTOIN
     Dosage: 200 MG, 3X/DAY
     Route: 048

REACTIONS (3)
  - Bradycardia [Recovered/Resolved]
  - Respiratory failure [Unknown]
  - Toxicity to various agents [Recovered/Resolved]
